FAERS Safety Report 14078552 (Version 2)
Quarter: 2017Q4

REPORT INFORMATION
  Report Type: Spontaneous
  Country: US (occurrence: US)
  Receive Date: 20171012
  Receipt Date: 20171107
  Transmission Date: 20180321
  Serious: Yes (Other)
  Sender: FDA-Public Use
  Company Number: PHEH2017US032626

PATIENT
  Sex: Male

DRUGS (1)
  1. DIOVAN [Suspect]
     Active Substance: VALSARTAN
     Indication: PRODUCT USED FOR UNKNOWN INDICATION
     Dosage: 320 MG, UNK
     Route: 065

REACTIONS (6)
  - Product taste abnormal [Unknown]
  - Product odour abnormal [Unknown]
  - Neoplasm [Unknown]
  - Procedural pain [Unknown]
  - Drug dispensing error [Unknown]
  - Wrong technique in product usage process [Unknown]
